FAERS Safety Report 12715764 (Version 1)
Quarter: 2016Q3

REPORT INFORMATION
  Report Type: Spontaneous
  Country: US (occurrence: US)
  Receive Date: 20160906
  Receipt Date: 20160906
  Transmission Date: 20161109
  Serious: Yes (Other)
  Sender: FDA-Public Use
  Company Number: US-PFIZER INC-2016415024

PATIENT
  Age: 77 Year
  Sex: Female

DRUGS (1)
  1. CELEBREX [Suspect]
     Active Substance: CELECOXIB
     Dosage: UNK, 2X/DAY (TWICE A DAY FOR 2 WEEKS)
     Dates: start: 201007, end: 201007

REACTIONS (8)
  - Food intolerance [Unknown]
  - Rash pruritic [Unknown]
  - Urticaria [Unknown]
  - Erythema multiforme [Unknown]
  - Asthenia [Unknown]
  - Rash [Unknown]
  - Heart rate increased [Unknown]
  - Skin mass [Unknown]

NARRATIVE: CASE EVENT DATE: 20100801
